FAERS Safety Report 19401124 (Version 1)
Quarter: 2021Q2

REPORT INFORMATION
  Report Type: Spontaneous
  Country: US (occurrence: US)
  Receive Date: 20210610
  Receipt Date: 20210610
  Transmission Date: 20210717
  Serious: Yes (Other)
  Sender: FDA-Public Use
  Company Number: US-BEXIMCO-2021BEX00028

PATIENT
  Age: 5 Month
  Sex: Male

DRUGS (2)
  1. FLECAINIDE ACETATE. [Suspect]
     Active Substance: FLECAINIDE ACETATE
     Dosage: 80 MG
     Route: 065
  2. FLECAINIDE ACETATE. [Suspect]
     Active Substance: FLECAINIDE ACETATE
     Dosage: 8 MG
     Route: 065

REACTIONS (3)
  - Hypoxia [Recovered/Resolved]
  - Overdose [Recovered/Resolved]
  - Arrhythmia [Recovered/Resolved]
